FAERS Safety Report 7446956-4 (Version None)
Quarter: 2011Q2

REPORT INFORMATION
  Report Type: 
  Country: None (occurrence: None)
  Receive Date: 20110429
  Receipt Date: 20101111
  Transmission Date: 20111010
  Serious: No
  Sender: FDA-Public Use
  Company Number: US-ASTRAZENECA-2010SE53756

PATIENT
  Sex: Female

DRUGS (1)
  1. NEXIUM [Suspect]
     Route: 048

REACTIONS (4)
  - CATARACT [None]
  - ULCER [None]
  - VIRAL INFECTION [None]
  - EYE DISORDER [None]
